FAERS Safety Report 17730617 (Version 4)
Quarter: 2020Q3

REPORT INFORMATION
  Report Type: Spontaneous
  Country: US (occurrence: US)
  Receive Date: 20200430
  Receipt Date: 20200902
  Transmission Date: 20201102
  Serious: Yes (Hospitalization, Other)
  Sender: FDA-Public Use
  Company Number: US-GLAXOSMITHKLINE-US2020AMR072160

PATIENT
  Age: 61 Year
  Sex: Female

DRUGS (2)
  1. ZEJULA [Suspect]
     Active Substance: NIRAPARIB
     Dosage: 200 MG, QD
     Route: 048
  2. ZEJULA [Suspect]
     Active Substance: NIRAPARIB
     Indication: OVARIAN CANCER
     Dosage: 200 MG, QD
     Route: 048
     Dates: start: 20200411

REACTIONS (11)
  - Swelling face [Unknown]
  - Myalgia [Recovering/Resolving]
  - Abdominal pain lower [Unknown]
  - Pneumonia [Unknown]
  - Thrombosis [Unknown]
  - Carbohydrate antigen 125 increased [Unknown]
  - Pain [Recovering/Resolving]
  - Peripheral swelling [Unknown]
  - Decreased appetite [Unknown]
  - COVID-19 [Unknown]
  - Insomnia [Unknown]

NARRATIVE: CASE EVENT DATE: 20200424
